FAERS Safety Report 5312555-3 (Version None)
Quarter: 2007Q2

REPORT INFORMATION
  Report Type: 
  Country: None (occurrence: None)
  Receive Date: 20070430
  Receipt Date: 20070122
  Transmission Date: 20071010
  Serious: No
  Sender: FDA-Public Use
  Company Number: 2007UW01370

PATIENT
  Age: 66 Year
  Sex: Female
  Weight: 79.8 kg

DRUGS (12)
  1. NEXIUM [Suspect]
     Indication: HIATUS HERNIA
     Route: 048
     Dates: start: 20061211, end: 20061218
  2. NEXIUM [Suspect]
     Indication: GASTROOESOPHAGEAL REFLUX DISEASE
     Route: 048
     Dates: start: 20061211, end: 20061218
  3. VITAMINS [Concomitant]
  4. METANX [Concomitant]
  5. SYNTHROID [Concomitant]
  6. RANITIDINE [Concomitant]
  7. PREVACID [Concomitant]
  8. INSULIN [Concomitant]
  9. DIOVAN [Concomitant]
  10. LIMBREL [Concomitant]
  11. METFORMIN HCL [Concomitant]
  12. LIPITOR [Concomitant]

REACTIONS (5)
  - ABDOMINAL PAIN UPPER [None]
  - ACNE [None]
  - BLOOD GLUCOSE INCREASED [None]
  - DIARRHOEA [None]
  - DRUG INEFFECTIVE [None]
